FAERS Safety Report 7857894-7 (Version None)
Quarter: 2011Q4

REPORT INFORMATION
  Report Type: 
  Country: None (occurrence: None)
  Receive Date: 20111027
  Receipt Date: 20110301
  Transmission Date: 20120403
  Serious: Yes (Other)
  Sender: FDA-Public Use
  Company Number: US-BAYER-2011-020506

PATIENT
  Sex: Male
  Weight: 59 kg

DRUGS (2)
  1. ALEVE (CAPLET) [Suspect]
     Indication: WRIST FRACTURE
     Dosage: 220 MG, BID, BOTTLE COUNT 24S
     Route: 048
     Dates: start: 20110210, end: 20110226
  2. LYRICA [Concomitant]
     Indication: WRIST FRACTURE
     Dosage: DAILY DOSE 300 MG
     Dates: end: 20110226

REACTIONS (5)
  - ASTHENIA [None]
  - DIZZINESS [None]
  - EPISTAXIS [None]
  - ARTHRALGIA [None]
  - HEADACHE [None]
